FAERS Safety Report 9521169 (Version 1)
Quarter: 2013Q1

REPORT INFORMATION
  Report Type: Spontaneous
  Country: US (occurrence: None)
  Receive Date: 20130305
  Receipt Date: 20130305
  Transmission Date: 20140127
  Serious: Yes (Other)
  Sender: FDA-Public Use
  Company Number: 163-21880-12100370

PATIENT
  Age: 67 Year
  Sex: Male
  Weight: 108.86 kg

DRUGS (10)
  1. REVLIMID (LENALIDOMIDE) (25 MILLIGRAM, CAPSULES) [Suspect]
     Indication: PLASMA CELL MYELOMA
     Dosage: 21 IN 28 D
     Route: 048
     Dates: start: 20121001
  2. AMOXICILLIN (AMOXICILLIN) (UNKNOWN) [Concomitant]
  3. ASA (ACETYLSALICYLIC ACID) (TABLETS) [Concomitant]
  4. DEXAMETHASONE (DEXAMETHASONE) (UNKNOWN) [Concomitant]
  5. GLUCOSAMINE) (GLUCOSAMINE) (UNKNOWN) [Concomitant]
  6. LORTAB (VICODIN) (UNKNOWN) [Concomitant]
  7. MULTIVITAMINS (MULTIVITAMINS) (CAPSULES) [Concomitant]
  8. VITAMIN B 6 (PYRIDOXINE HYDROCHLORIDE) (TABLETS) [Concomitant]
  9. SAW PALMETTO (SERENOA REPENS) (UNKNOWN) [Concomitant]
  10. NEXIUM (ESOMEPRAZOLE) (CAPSULES) [Concomitant]

REACTIONS (8)
  - Rash [None]
  - Flushing [None]
  - Pollakiuria [None]
  - Dry mouth [None]
  - Pain in extremity [None]
  - Abdominal pain upper [None]
  - Chest discomfort [None]
  - Pruritus [None]
